FAERS Safety Report 9338491 (Version 1)
Quarter: 2013Q2

REPORT INFORMATION
  Report Type: Spontaneous
  Country: US (occurrence: US)
  Receive Date: 20130610
  Receipt Date: 20130610
  Transmission Date: 20140414
  Serious: Yes (Death, Other)
  Sender: FDA-Public Use
  Company Number: US-JNJFOC-20130520517

PATIENT
  Sex: Female

DRUGS (1)
  1. DOXORUBICIN [Suspect]
     Indication: ENDOMETRIAL CANCER RECURRENT
     Route: 042

REACTIONS (3)
  - Endometrial cancer [Fatal]
  - Neuropathy peripheral [Unknown]
  - Off label use [Unknown]
